FAERS Safety Report 24592834 (Version 1)
Quarter: 2024Q4

REPORT INFORMATION
  Report Type: Spontaneous
  Country: US (occurrence: None)
  Receive Date: 20241107
  Receipt Date: 20241107
  Transmission Date: 20250114
  Serious: No
  Sender: Public
  Company Number: None

PATIENT
  Age: 72 Year
  Sex: Female

DRUGS (9)
  1. IBRANCE [Suspect]
     Active Substance: PALBOCICLIB
     Indication: Breast cancer
     Dosage: FREQUENCY : DAILY;?
     Route: 048
  2. CYCLOBENZAPRINE [Concomitant]
     Active Substance: CYCLOBENZAPRINE
  3. GABAPENTIN [Concomitant]
     Active Substance: GABAPENTIN
  4. JANUVIA [Concomitant]
     Active Substance: SITAGLIPTIN PHOSPHATE
  5. LOSARTAN [Concomitant]
     Active Substance: LOSARTAN
  6. NOVOLOG [Concomitant]
     Active Substance: INSULIN ASPART
  7. ROSUVASTATIN [Concomitant]
     Active Substance: ROSUVASTATIN
  8. ZOMETA [Concomitant]
     Active Substance: ZOLEDRONIC ACID
  9. KERENDIA [Concomitant]
     Active Substance: FINERENONE

REACTIONS (1)
  - Full blood count decreased [None]
